FAERS Safety Report 4686864-5 (Version None)
Quarter: 2005Q2

REPORT INFORMATION
  Report Type: 
  Country: None (occurrence: None)
  Receive Date: 20050609
  Receipt Date: 20050530
  Transmission Date: 20051028
  Serious: Yes (Other)
  Sender: FDA-Public Use
  Company Number: JP-MERCK-0506USA00659

PATIENT
  Age: 74 Year
  Sex: Female

DRUGS (4)
  1. PEPCID RPD [Suspect]
     Route: 048
     Dates: start: 19990101, end: 20050515
  2. ACTONEL [Suspect]
     Route: 048
     Dates: start: 20020101, end: 20050508
  3. LIPOVAS [Suspect]
     Route: 048
     Dates: start: 20040101, end: 20050501
  4. BAYASPIRIN [Suspect]
     Route: 048
     Dates: start: 20030101, end: 20050515

REACTIONS (3)
  - ERYTHEMA [None]
  - ERYTHEMA MULTIFORME [None]
  - RASH [None]
